FAERS Safety Report 11660301 (Version 1)
Quarter: 2015Q4

REPORT INFORMATION
  Report Type: Spontaneous
  Country: US (occurrence: US)
  Receive Date: 20151026
  Receipt Date: 20151026
  Transmission Date: 20160304
  Serious: No
  Sender: FDA-Public Use
  Company Number: US-MEDA-2011040059

PATIENT
  Sex: Female

DRUGS (6)
  1. AZELASTINE [Concomitant]
     Active Substance: AZELASTINE
     Indication: PERENNIAL ALLERGY
     Dates: start: 20110121, end: 20110128
  2. ASTEPRO [Suspect]
     Active Substance: AZELASTINE HYDROCHLORIDE
     Indication: HYPERSENSITIVITY
     Dates: start: 20110201, end: 20110201
  3. ASTELIN [Concomitant]
     Active Substance: AZELASTINE HYDROCHLORIDE
     Indication: PERENNIAL ALLERGY
     Dates: start: 20110202
  4. ASTEPRO [Suspect]
     Active Substance: AZELASTINE HYDROCHLORIDE
     Indication: HYPERSENSITIVITY
     Dates: start: 20110218, end: 20110218
  5. ALLEGRA [Concomitant]
     Active Substance: FEXOFENADINE HYDROCHLORIDE
     Indication: PERENNIAL ALLERGY
     Route: 048
  6. ASTELIN [Concomitant]
     Active Substance: AZELASTINE HYDROCHLORIDE
     Indication: PERENNIAL ALLERGY
     Dates: start: 1990, end: 20110120

REACTIONS (1)
  - Dysgeusia [Recovered/Resolved]

NARRATIVE: CASE EVENT DATE: 20110201
